FAERS Safety Report 7225759-X (Version None)
Quarter: 2011Q1

REPORT INFORMATION
  Report Type: 
  Country: None (occurrence: None)
  Receive Date: 20110113
  Receipt Date: 20110105
  Transmission Date: 20110831
  Serious: Yes (Other)
  Sender: FDA-Public Use
  Company Number: US-US-EMD SERONO, INC.-232954J09USA

PATIENT
  Sex: Female

DRUGS (2)
  1. UNSPECIFIED TREATMENT [Concomitant]
     Indication: THYROID DISORDER
  2. REBIF [Suspect]
     Indication: MULTIPLE SCLEROSIS
     Route: 058
     Dates: start: 20090413, end: 20091012

REACTIONS (3)
  - HEPATIC STEATOSIS [None]
  - ABDOMINAL TENDERNESS [None]
  - LIVER FUNCTION TEST ABNORMAL [None]
